FAERS Safety Report 7308897-2 (Version None)
Quarter: 2011Q1

REPORT INFORMATION
  Report Type: 
  Country: None (occurrence: None)
  Receive Date: 20110223
  Receipt Date: 20100317
  Transmission Date: 20110831
  Serious: No
  Sender: FDA-Public Use
  Company Number: US-NOVOPROD-305807

PATIENT
  Sex: Female

DRUGS (2)
  1. NOVOSEVEN [Suspect]
     Indication: FACTOR VII DEFICIENCY
     Route: 058
  2. NOVOSEVEN [Suspect]
     Indication: PROPHYLAXIS

REACTIONS (1)
  - TOOTH DISORDER [None]
